FAERS Safety Report 9732160 (Version 1)
Quarter: 2013Q4

REPORT INFORMATION
  Report Type: Spontaneous
  Country: JP (occurrence: JP)
  Receive Date: 20131205
  Receipt Date: 20131205
  Transmission Date: 20140711
  Serious: Yes (Hospitalization)
  Sender: FDA-Public Use
  Company Number: JP-ASTELLAS-2013JP013370

PATIENT
  Age: 82 Year
  Sex: Male

DRUGS (2)
  1. BETANIS [Suspect]
     Indication: HYPERTONIC BLADDER
     Dosage: 25 MG, UNKNOWN/D
     Route: 048
     Dates: start: 20120914, end: 20131108
  2. PLETAAL [Concomitant]
     Route: 048

REACTIONS (2)
  - Hepatic function abnormal [Recovered/Resolved]
  - Bradycardia [Recovered/Resolved]
